FAERS Safety Report 21148909 (Version 1)
Quarter: 2022Q3

REPORT INFORMATION
  Report Type: Spontaneous
  Country: US (occurrence: None)
  Receive Date: 20220729
  Receipt Date: 20220729
  Transmission Date: 20221026
  Serious: No
  Sender: FDA-Public Use
  Company Number: None

PATIENT
  Sex: Female
  Weight: 63.45 kg

DRUGS (1)
  1. PAXLOVID [Suspect]
     Active Substance: NIRMATRELVIR\RITONAVIR
     Indication: SARS-CoV-2 test positive
     Dosage: FREQUENCY : TWICE A DAY;?
     Route: 048
     Dates: start: 20220727, end: 20220729

REACTIONS (10)
  - Tremor [None]
  - Diarrhoea [None]
  - Middle insomnia [None]
  - Nausea [None]
  - Feeling hot [None]
  - Hot flush [None]
  - Abdominal pain upper [None]
  - Somnolence [None]
  - Dysgeusia [None]
  - Therapy interrupted [None]

NARRATIVE: CASE EVENT DATE: 20220729
